FAERS Safety Report 25686698 (Version 1)
Quarter: 2025Q3

REPORT INFORMATION
  Report Type: Spontaneous
  Country: GB (occurrence: GB)
  Receive Date: 20250816
  Receipt Date: 20250816
  Transmission Date: 20251020
  Serious: Yes (Hospitalization)
  Sender: AMGEN
  Company Number: GB-AMGEN-GBRSP2025158179

PATIENT
  Age: 84 Year
  Sex: Female

DRUGS (3)
  1. PROLIA [Suspect]
     Active Substance: DENOSUMAB
     Indication: Osteoporosis
     Route: 058
  2. IRON [Suspect]
     Active Substance: IRON
     Indication: Iron deficiency anaemia
     Route: 040
  3. CHOLECALCIFEROL [Concomitant]
     Active Substance: CHOLECALCIFEROL
     Dosage: 40000 INTERNATIONAL UNIT, QD (FOR 7 DAY)

REACTIONS (7)
  - Cardiac failure [Recovering/Resolving]
  - Hypocalcaemia [Recovering/Resolving]
  - Chronic kidney disease [Unknown]
  - Iron deficiency anaemia [Unknown]
  - Drug interaction [Unknown]
  - Hyperparathyroidism [Unknown]
  - Hypophosphataemia [Unknown]
